FAERS Safety Report 8468750-8 (Version None)
Quarter: 2012Q2

REPORT INFORMATION
  Report Type: 
  Country: None (occurrence: None)
  Receive Date: 20120626
  Receipt Date: 20120614
  Transmission Date: 20120825
  Serious: Yes (Death, Life-Threatening, Other)
  Sender: FDA-Public Use
  Company Number: BE-ROCHE-1074473

PATIENT
  Age: 61 Year
  Sex: Female

DRUGS (9)
  1. NAPROXEN [Suspect]
     Indication: ARTHRITIS
     Route: 048
  2. NAPROXEN [Suspect]
  3. RANITIDINE [Concomitant]
  4. TRAMADOL HCL [Concomitant]
  5. METFORMIN HCL [Concomitant]
  6. ATORVASTATIN [Suspect]
     Indication: HYPERCHOLESTEROLAEMIA
     Route: 048
  7. LISINOPRIL [Concomitant]
  8. ALLOPURINOL [Concomitant]
  9. QUININE SULFATE [Concomitant]

REACTIONS (9)
  - BRADYCARDIA [None]
  - TOXIC EPIDERMAL NECROLYSIS [None]
  - RENAL FAILURE ACUTE [None]
  - RHABDOMYOLYSIS [None]
  - DISSEMINATED INTRAVASCULAR COAGULATION [None]
  - RESPIRATORY FAILURE [None]
  - HEPATIC FAILURE [None]
  - CARDIAC ARREST [None]
  - RENAL TUBULAR NECROSIS [None]
